FAERS Safety Report 24361561 (Version 1)
Quarter: 2024Q3

REPORT INFORMATION
  Report Type: Other
  Country: TN (occurrence: TN)
  Receive Date: 20240925
  Receipt Date: 20240925
  Transmission Date: 20241017
  Serious: Yes (Hospitalization)
  Sender: ORBION PHARMACEUTICALS
  Company Number: TN-OrBion Pharmaceuticals Private Limited-2162012

PATIENT
  Age: 50 Year
  Sex: Female

DRUGS (3)
  1. LEVETIRACETAM [Suspect]
     Active Substance: LEVETIRACETAM
     Indication: Seizure
     Dates: start: 201307, end: 201307
  2. DIVALPROEX SODIUM [Suspect]
     Active Substance: DIVALPROEX SODIUM
     Dates: start: 201308, end: 201308
  3. PHENOBARBITAL [Concomitant]
     Active Substance: PHENOBARBITAL
     Dates: start: 201308, end: 201308

REACTIONS (3)
  - Status epilepticus [Recovered/Resolved]
  - Drug reaction with eosinophilia and systemic symptoms [Recovered/Resolved]
  - Cardio-respiratory arrest [Recovered/Resolved]

NARRATIVE: CASE EVENT DATE: 20130701
